FAERS Safety Report 5293084-2 (Version None)
Quarter: 2007Q2

REPORT INFORMATION
  Report Type: 
  Country: None (occurrence: None)
  Receive Date: 20070411
  Receipt Date: 20070329
  Transmission Date: 20071010
  Serious: Yes (Hospitalization, Other)
  Sender: FDA-Public Use
  Company Number: PHEH2006US13754

PATIENT
  Sex: Female
  Weight: 57.596 kg

DRUGS (36)
  1. ZOMETA [Suspect]
     Dosage: 4MG, EVERY 4 WEEKS
     Dates: start: 20030529
  2. NORVASC [Concomitant]
  3. DOCUSATE SODIUM [Concomitant]
     Dosage: 100 MG, TID
     Route: 048
  4. ESCITALOPRAM [Concomitant]
  5. LACTULOSE [Concomitant]
  6. TAXOL [Concomitant]
  7. ADVIL [Concomitant]
     Dosage: 200 MG, PRN
  8. ALPRAZOLAM [Concomitant]
     Dosage: 0.1 MG, PRN
  9. AMOXICILLIN [Concomitant]
     Dosage: 500 MG, Q6H
  10. LEXAPRO [Concomitant]
     Route: 048
  11. ANUCORT-HC [Concomitant]
     Dates: end: 20060612
  12. CALCIUM WITH VITAMIN D [Concomitant]
     Dosage: 500 MG, QD
     Dates: end: 20070322
  13. CIPRO [Concomitant]
  14. COMPAZINE [Concomitant]
  15. DILTIAZEM [Concomitant]
  16. DOXYCYCLINE HYCLATE [Concomitant]
  17. GLUCOSAMINE SULFATE W/CHONDROITIN [Concomitant]
  18. HALOTESTIN [Concomitant]
     Dates: end: 20060921
  19. IMODIUM [Concomitant]
     Dosage: 2 MG, TWO TABLETS Q 6 HOURS
     Dates: start: 20060301, end: 20060921
  20. LASIX [Concomitant]
     Dosage: 20 MG, UNK
     Dates: start: 20060731
  21. MECLIZINE [Concomitant]
     Dosage: 10 MG, TID
     Dates: end: 20060921
  22. MEGACE [Concomitant]
     Dosage: 12.5 MG, TID
     Dates: end: 20070322
  23. METHYLPHENIDATE HCL [Concomitant]
     Dosage: 5 MG, QD
     Dates: start: 20060612, end: 20060616
  24. MULTI-VITAMIN [Concomitant]
  25. PEPTO-BISMOL [Concomitant]
     Dates: start: 20060628
  26. REGLAN [Concomitant]
  27. B12 [Concomitant]
  28. MYLANTA [Concomitant]
  29. LIDOCAINE HCL VISCOUS [Concomitant]
  30. HERCEPTIN [Concomitant]
  31. FASLODEX [Concomitant]
  32. PROCRIT [Concomitant]
  33. ARANESP [Concomitant]
  34. VENOFER [Concomitant]
  35. NAVELBINE [Concomitant]
  36. NEUPOGEN [Concomitant]

REACTIONS (23)
  - ANXIETY DISORDER [None]
  - APHTHOUS STOMATITIS [None]
  - BONE DISORDER [None]
  - DENTAL CARIES [None]
  - DIARRHOEA [None]
  - DIZZINESS [None]
  - ERYTHEMA [None]
  - FLUID RETENTION [None]
  - GAIT DISTURBANCE [None]
  - GINGIVITIS [None]
  - HAEMORRHOIDAL HAEMORRHAGE [None]
  - HYPERTENSION [None]
  - HYPOMAGNESAEMIA [None]
  - INFECTION [None]
  - MALNUTRITION [None]
  - NEUROPATHY PERIPHERAL [None]
  - NEUTROPENIA [None]
  - OSTEONECROSIS [None]
  - PAIN [None]
  - PYREXIA [None]
  - SWELLING [None]
  - THROMBOCYTOPENIA [None]
  - TOOTH LOSS [None]
